FAERS Safety Report 10795484 (Version 1)
Quarter: 2015Q1

REPORT INFORMATION
  Report Type: Spontaneous
  Country: GR (occurrence: GR)
  Receive Date: 20150215
  Receipt Date: 20150215
  Transmission Date: 20150721
  Serious: Yes (Other)
  Sender: FDA-Public Use
  Company Number: GR-WATSON-2015-01627

PATIENT
  Age: 42 Year
  Sex: Male

DRUGS (5)
  1. HYDROCORTISONE. [Concomitant]
     Active Substance: HYDROCORTISONE
     Indication: HORMONE REPLACEMENT THERAPY
     Dosage: 20 MG, DAILY
     Route: 065
  2. TESTOSTERONE. [Concomitant]
     Active Substance: TESTOSTERONE
     Indication: HORMONE REPLACEMENT THERAPY
     Dosage: UNK
     Route: 030
  3. CABERGOLINE (UNKNOWN) [Suspect]
     Active Substance: CABERGOLINE
     Indication: PROLACTINOMA
     Dosage: 3.5 MG, 1/WEEK
     Route: 065
  4. PHENYTOIN. [Concomitant]
     Active Substance: PHENYTOIN
     Indication: SEIZURE
     Dosage: UNK
     Route: 065
  5. THYROXINE [Concomitant]
     Active Substance: LEVOTHYROXINE
     Indication: HORMONE REPLACEMENT THERAPY
     Dosage: 100 MG, DAILY
     Route: 065

REACTIONS (3)
  - Brain herniation [Recovered/Resolved]
  - Optic nerve injury [Recovered/Resolved]
  - Empty sella syndrome [Recovered/Resolved]
